FAERS Safety Report 5408597-X (Version None)
Quarter: 2007Q3

REPORT INFORMATION
  Report Type: 
  Country: None (occurrence: None)
  Receive Date: 20070808
  Receipt Date: 20070730
  Transmission Date: 20080115
  Serious: Yes (Hospitalization, Other)
  Sender: FDA-Public Use
  Company Number: US-PFIZER INC-2006101236

PATIENT
  Sex: Female

DRUGS (3)
  1. CELEBREX [Suspect]
     Indication: PAIN
     Route: 048
  2. BEXTRA [Suspect]
     Indication: PAIN
     Route: 048
     Dates: start: 20021214
  3. VIOXX [Suspect]
     Route: 048

REACTIONS (2)
  - CEREBROVASCULAR ACCIDENT [None]
  - MYOCARDIAL INFARCTION [None]
